FAERS Safety Report 7131908-4 (Version None)
Quarter: 2010Q4

REPORT INFORMATION
  Report Type: 
  Country: None (occurrence: None)
  Receive Date: 20101202
  Receipt Date: 20101129
  Transmission Date: 20110411
  Serious: Yes (Other)
  Sender: FDA-Public Use
  Company Number: US-PFIZER INC-2010067265

PATIENT
  Sex: Male
  Weight: 79 kg

DRUGS (6)
  1. CHANTIX [Suspect]
     Indication: SMOKING CESSATION THERAPY
     Dosage: 0.5 MG, UNK
     Route: 048
     Dates: start: 20100508
  2. CHANTIX [Suspect]
     Dosage: UNK
     Dates: start: 20100101
  3. CARBIDOPA + LEVODOPA [Suspect]
     Indication: TREMOR
     Dosage: 10/100 MG, DAILY
     Route: 048
  4. CARBIDOPA + LEVODOPA [Suspect]
     Indication: PARAESTHESIA
  5. CARBIDOPA + LEVODOPA [Suspect]
     Indication: PERIPHERAL COLDNESS
  6. AVODART [Concomitant]
     Dosage: UNK

REACTIONS (5)
  - ANXIETY [None]
  - BACK DISORDER [None]
  - COUGH [None]
  - DRY MOUTH [None]
  - INSOMNIA [None]
